FAERS Safety Report 7282874-2 (Version None)
Quarter: 2011Q1

REPORT INFORMATION
  Report Type: 
  Country: None (occurrence: None)
  Receive Date: 20110125
  Receipt Date: 20110113
  Transmission Date: 20110831
  Serious: Yes (Hospitalization)
  Sender: FDA-Public Use
  Company Number: 022929

PATIENT
  Sex: Female

DRUGS (1)
  1. CIMZIA [Suspect]
     Indication: CROHN'S DISEASE
     Dosage: 200 MG 1X/2 WEEKS SUBCUTANEOUS
     Route: 058
     Dates: start: 20100120, end: 20100101

REACTIONS (9)
  - BACK PAIN [None]
  - FREQUENT BOWEL MOVEMENTS [None]
  - ARTHRALGIA [None]
  - PRODUCT QUALITY ISSUE [None]
  - DIARRHOEA [None]
  - FEELING ABNORMAL [None]
  - IRRITABLE BOWEL SYNDROME [None]
  - FATIGUE [None]
  - ABDOMINAL PAIN UPPER [None]
